FAERS Safety Report 6038166-2 (Version None)
Quarter: 2009Q1

REPORT INFORMATION
  Report Type: 
  Country: None (occurrence: None)
  Receive Date: 20090115
  Receipt Date: 20090106
  Transmission Date: 20090719
  Serious: Yes (Other)
  Sender: FDA-Public Use
  Company Number: AR-CELGENEUS-007-20785-09010158

PATIENT
  Age: 67 Year
  Sex: Female

DRUGS (2)
  1. THALIDOMIDE [Suspect]
     Indication: MYELOFIBROSIS
     Route: 048
     Dates: start: 20020101
  2. PREDNISONE TAB [Concomitant]
     Indication: MYELOFIBROSIS
     Route: 065

REACTIONS (9)
  - ANAEMIA [None]
  - ANAEMIA HAEMOLYTIC AUTOIMMUNE [None]
  - BASOPHILIA [None]
  - FIBRILLARY GLOMERULONEPHRITIS [None]
  - NEPHROTIC SYNDROME [None]
  - NO THERAPEUTIC RESPONSE [None]
  - POLYNEUROPATHY [None]
  - RENAL IMPAIRMENT [None]
  - SEPSIS [None]
